FAERS Safety Report 9571457 (Version 1)
Quarter: 2013Q3

REPORT INFORMATION
  Report Type: Spontaneous
  Country: US (occurrence: None)
  Receive Date: 20130927
  Receipt Date: 20130927
  Transmission Date: 20140515
  Serious: No
  Sender: FDA-Public Use
  Company Number: None

PATIENT
  Age: 78 Year
  Sex: Male
  Weight: 77.57 kg

DRUGS (3)
  1. ALFUZOSIN [Suspect]
     Indication: BENIGN PROSTATIC HYPERPLASIA
     Dosage: 10MG, 1 PILL, 1 DAILY
     Dates: start: 20130912, end: 20130913
  2. ASPIRIN [Concomitant]
  3. MULTIVITAMIN [Concomitant]

REACTIONS (5)
  - Abdominal pain upper [None]
  - Dizziness [None]
  - Feeling hot [None]
  - Hyperhidrosis [None]
  - Feeling abnormal [None]
